FAERS Safety Report 7791020-8 (Version None)
Quarter: 2011Q4

REPORT INFORMATION
  Report Type: 
  Country: None (occurrence: None)
  Receive Date: 20111003
  Receipt Date: 20110919
  Transmission Date: 20120403
  Serious: Yes (Death, Hospitalization)
  Sender: FDA-Public Use
  Company Number: BR-BIOGENIDEC-2011BI024375

PATIENT
  Age: 29 Year
  Sex: Female

DRUGS (7)
  1. ZOLPIDEM [Concomitant]
     Indication: DEPRESSION
     Dates: end: 20110704
  2. ZOLPIDEM [Concomitant]
     Indication: INSOMNIA
     Dates: end: 20110704
  3. CLONAZEPAM [Concomitant]
     Indication: DEPRESSION
     Route: 048
     Dates: end: 20110704
  4. CLONAZEPAM [Concomitant]
     Indication: INSOMNIA
     Route: 048
     Dates: end: 20110704
  5. AMYTRIPTYLINE [Concomitant]
     Indication: INSOMNIA
     Dates: end: 20110704
  6. AMYTRIPTYLINE [Concomitant]
     Indication: DEPRESSION
     Dates: end: 20110704
  7. TYSABRI [Suspect]
     Indication: MULTIPLE SCLEROSIS
     Route: 042
     Dates: start: 20080101, end: 20110622

REACTIONS (4)
  - COMPLETED SUICIDE [None]
  - DEPRESSION [None]
  - DECREASED APPETITE [None]
  - OVERDOSE [None]
